FAERS Safety Report 14948556 (Version 5)
Quarter: 2018Q3

REPORT INFORMATION
  Report Type: Report from Study
  Country: US (occurrence: US)
  Receive Date: 20180529
  Receipt Date: 20180716
  Transmission Date: 20181010
  Serious: Yes (Hospitalization, Other)
  Sender: FDA-Public Use
  Company Number: US-AMGEN-USACT2018071527

PATIENT
  Age: 71 Year
  Sex: Female
  Weight: 52.9 kg

DRUGS (21)
  1. TALIMOGENE LAHERPAREPVEC [Suspect]
     Active Substance: TALIMOGENE LAHERPAREPVEC
     Indication: COLORECTAL CANCER
     Dosage: 2 ML, UNK
     Route: 026
     Dates: start: 20180328
  2. MAGNESIUM [Concomitant]
     Active Substance: MAGNESIUM
     Dosage: 400 MG, UNK
     Route: 048
     Dates: start: 20180320
  3. DILAUDID [Concomitant]
     Active Substance: HYDROMORPHONE HYDROCHLORIDE
     Dosage: 0.5 MG, UNK
     Route: 048
     Dates: start: 20180329, end: 20180405
  4. CIPROFLOXACIN. [Concomitant]
     Active Substance: CIPROFLOXACIN
     Dosage: 20 MG, UNK
     Route: 042
     Dates: start: 20180410, end: 20180417
  5. VICODIN [Concomitant]
     Active Substance: ACETAMINOPHEN\HYDROCODONE BITARTRATE
     Dosage: 300 MG, UNK
     Route: 048
     Dates: start: 20180220
  6. ATEZOLIZUMAB. [Suspect]
     Active Substance: ATEZOLIZUMAB
     Indication: COLORECTAL CANCER
     Dosage: 270 ML, UNK
     Route: 042
     Dates: start: 20180327
  7. FENTANYL. [Concomitant]
     Active Substance: FENTANYL
     Indication: PAIN
     Dosage: 25 MUG, UNK
     Route: 062
     Dates: start: 20180516
  8. LASIX [Concomitant]
     Active Substance: FUROSEMIDE
     Dosage: 20 MG, UNK
     Route: 042
     Dates: start: 20180508, end: 20180508
  9. SENNA [Concomitant]
     Active Substance: SENNA LEAF\SENNOSIDES\SENNOSIDES A AND B
     Indication: CONSTIPATION
     Dosage: 2 TABLET, AS NECESSARY
     Route: 048
  10. OMEPRAZOLE. [Concomitant]
     Active Substance: OMEPRAZOLE
     Dosage: 20 MG, UNK
     Route: 048
     Dates: start: 20150808
  11. POTASSIUM [Concomitant]
     Active Substance: POTASSIUM
     Dosage: 20 MEQ, UNK
     Route: 048
     Dates: start: 20171201
  12. ENOXAPARIN [Concomitant]
     Active Substance: ENOXAPARIN
     Dosage: 40 MG, QD
     Route: 058
  13. DOCUSATE SODIUM. [Concomitant]
     Active Substance: DOCUSATE SODIUM
     Dosage: 100 MG, AS NECESSARY
     Route: 048
  14. POTASSIUM CHLORIDE. [Concomitant]
     Active Substance: POTASSIUM CHLORIDE
     Dosage: 200?300 ML AND 40 MEQ, Q4H
     Route: 042
     Dates: start: 20180410, end: 20180410
  15. OXYCODONE [Concomitant]
     Active Substance: OXYCODONE
     Indication: PAIN
     Dosage: 10 MG, AS NECESSARY
     Route: 048
     Dates: start: 20180328
  16. DILTIAZEM. [Concomitant]
     Active Substance: DILTIAZEM
     Indication: HYPERTENSION
     Dosage: 240 MG, QD
     Route: 048
     Dates: start: 20170109
  17. CARDIZEM [Concomitant]
     Active Substance: DILTIAZEM HYDROCHLORIDE
     Indication: BLOOD PRESSURE SYSTOLIC
     Dosage: UNK
  18. VITAMIN B12 [Concomitant]
     Active Substance: CYANOCOBALAMIN
     Dosage: 2000 MUG, UNK
     Route: 048
     Dates: start: 20180301
  19. VITAMIN D [Concomitant]
     Active Substance: CHOLECALCIFEROL
     Dosage: 1000 IU, UNK
     Route: 048
     Dates: start: 20170201
  20. PANTOPRAZOLE [Concomitant]
     Active Substance: PANTOPRAZOLE
     Indication: GASTROOESOPHAGEAL REFLUX DISEASE
     Dosage: 40 MG, QD
     Route: 048
  21. ZOSYN [Concomitant]
     Active Substance: PIPERACILLIN SODIUM\TAZOBACTAM SODIUM
     Dosage: 25 ML, AS NECESSARY

REACTIONS (1)
  - Intra-abdominal fluid collection [Not Recovered/Not Resolved]

NARRATIVE: CASE EVENT DATE: 20180523
